FAERS Safety Report 19383243 (Version 1)
Quarter: 2021Q2

REPORT INFORMATION
  Report Type: Spontaneous
  Country: US (occurrence: US)
  Receive Date: 20210608
  Receipt Date: 20210608
  Transmission Date: 20210717
  Serious: Yes (Hospitalization, Other)
  Sender: FDA-Public Use
  Company Number: US-SUN PHARMACEUTICAL INDUSTRIES LTD-2021R1-299063

PATIENT
  Age: 75 Year
  Sex: Female

DRUGS (1)
  1. PREDNISONE. [Suspect]
     Active Substance: PREDNISONE
     Indication: TUBULOINTERSTITIAL NEPHRITIS
     Dosage: 40 MILLIGRAM, DAILY
     Route: 065

REACTIONS (4)
  - Mental status changes [Unknown]
  - Malignant neoplasm progression [Unknown]
  - Hypercalcaemia [Unknown]
  - Pneumonia klebsiella [Unknown]
